FAERS Safety Report 10241069 (Version 4)
Quarter: 2014Q4

REPORT INFORMATION
  Report Type: Report from Study
  Country: JP (occurrence: JP)
  Receive Date: 20140617
  Receipt Date: 20141125
  Transmission Date: 20150528
  Serious: Yes (Other)
  Sender: FDA-Public Use
  Company Number: JP-JNJFOC-20140609052

PATIENT
  Age: 38 Year
  Sex: Female
  Weight: 55 kg

DRUGS (4)
  1. TAKEPRON [Concomitant]
     Active Substance: LANSOPRAZOLE
     Route: 048
     Dates: start: 20140423, end: 20140611
  2. PEGINTRON [Suspect]
     Active Substance: PEGINTERFERON ALFA-2B
     Indication: CHRONIC HEPATITIS C
     Route: 058
     Dates: start: 20140205, end: 20140716
  3. SOVRIAD [Suspect]
     Active Substance: SIMEPREVIR
     Indication: CHRONIC HEPATITIS C
     Route: 048
     Dates: start: 20140205, end: 20140429
  4. RIBAVIRIN. [Suspect]
     Active Substance: RIBAVIRIN
     Indication: CHRONIC HEPATITIS C
     Dosage: PERORAL MEDICINE
     Route: 048
     Dates: start: 20140205, end: 20140725

REACTIONS (8)
  - Insomnia [Recovered/Resolved]
  - Vomiting [Recovering/Resolving]
  - Anaemia [Recovered/Resolved]
  - Productive cough [Recovering/Resolving]
  - Headache [Recovered/Resolved]
  - Malaise [Recovering/Resolving]
  - White blood cell count decreased [Recovered/Resolved]
  - Nausea [Recovering/Resolving]

NARRATIVE: CASE EVENT DATE: 20140217
